FAERS Safety Report 20120231 (Version 4)
Quarter: 2023Q2

REPORT INFORMATION
  Report Type: Other
  Country: US (occurrence: None)
  Receive Date: 20211126
  Receipt Date: 20230510
  Transmission Date: 20230722
  Serious: Yes (Hospitalization, Other)
  Sender: FDA-Public Use
  Company Number: US-ROCHE-2960210

PATIENT
  Age: 65 Year
  Sex: Female
  Weight: 61.290 kg

DRUGS (11)
  1. OCREVUS [Suspect]
     Active Substance: OCRELIZUMAB
     Indication: Relapsing multiple sclerosis
     Dosage: IV 300 MG DAY 1; IV 300 MG DAY 15, IV 600 MG Q 6 MONTH, LAST OCREVUS TREATMENT WAS 08/DEC/2021
     Route: 042
     Dates: start: 20171204, end: 20211208
  2. ADVIL [Concomitant]
     Active Substance: IBUPROFEN
  3. VOLTAREN [Concomitant]
     Active Substance: DICLOFENAC SODIUM
  4. CARBOXYMETHYLCELLULOSE SODIUM\GLYCERIN [Concomitant]
     Active Substance: CARBOXYMETHYLCELLULOSE SODIUM\GLYCERIN
  5. TOBRAMYCIN [Concomitant]
     Active Substance: TOBRAMYCIN
  6. COPAXONE [Concomitant]
     Active Substance: GLATIRAMER ACETATE
  7. TYSABRI [Concomitant]
     Active Substance: NATALIZUMAB
  8. PRAVASTATIN [Concomitant]
     Active Substance: PRAVASTATIN
     Dosage: ORAL TAB 40 MG ONCE A DAY
  9. LEVOTHYROXINE [Concomitant]
     Active Substance: LEVOTHYROXINE
     Dosage: ORAL TAB
  10. KETOPROFEN [Concomitant]
     Active Substance: KETOPROFEN
  11. IBUPROFEN [Concomitant]
     Active Substance: IBUPROFEN
     Dosage: 200 MG ORAL TAB

REACTIONS (19)
  - Urinary tract infection [Recovered/Resolved]
  - Blood immunoglobulin G decreased [Unknown]
  - Blood immunoglobulin M decreased [Unknown]
  - B-lymphocyte count decreased [Unknown]
  - Conjunctivitis [Recovered/Resolved]
  - Dry eye [Recovered/Resolved]
  - Skin exfoliation [Recovered/Resolved]
  - Dry skin [Recovered/Resolved]
  - Synovial cyst [Recovered/Resolved]
  - Pain [Recovered/Resolved]
  - Rash [Recovered/Resolved]
  - Pyometra [Not Recovered/Not Resolved]
  - Uterine abscess [Not Recovered/Not Resolved]
  - Pelvic pain [Not Recovered/Not Resolved]
  - Decreased appetite [Not Recovered/Not Resolved]
  - Weight decreased [Recovered/Resolved]
  - Muscle atrophy [Recovered/Resolved]
  - Infection [Not Recovered/Not Resolved]
  - Multiple sclerosis pseudo relapse [Recovered/Resolved]

NARRATIVE: CASE EVENT DATE: 20200101
